FAERS Safety Report 4423353-7 (Version None)
Quarter: 2004Q3

REPORT INFORMATION
  Report Type: 
  Country: None (occurrence: None)
  Receive Date: 20040806
  Receipt Date: 20040721
  Transmission Date: 20050211
  Serious: Yes (Hospitalization)
  Sender: FDA-Public Use
  Company Number: UKO04000164

PATIENT
  Age: 64 Year
  Sex: Female

DRUGS (1)
  1. METAMUCIL SUGAR-FREE SMOOTH TEXTURE, ORANGE FLAVOR (PSYLLIUM HYDROPHIL [Suspect]
     Dosage: 1 TEASPOON , ONCE ONLY, ORAL
     Route: 048
     Dates: start: 20040327, end: 20040327

REACTIONS (4)
  - ANAPHYLACTIC REACTION [None]
  - CIRCULATORY COLLAPSE [None]
  - COUGH [None]
  - DIZZINESS [None]
